FAERS Safety Report 5942978-0 (Version None)
Quarter: 2008Q4

REPORT INFORMATION
  Report Type: 
  Country: None (occurrence: None)
  Receive Date: 20081106
  Receipt Date: 20081006
  Transmission Date: 20090506
  Serious: No
  Sender: FDA-Public Use
  Company Number: US-BAYER-200835556NA

PATIENT
  Age: 21 Year
  Sex: Female
  Weight: 113 kg

DRUGS (1)
  1. MIRENA [Suspect]
     Indication: CONTRACEPTION
     Route: 015
     Dates: start: 20060101

REACTIONS (6)
  - AMENORRHOEA [None]
  - BREAST TENDERNESS [None]
  - FATIGUE [None]
  - FLUID RETENTION [None]
  - INCREASED APPETITE [None]
  - MOOD SWINGS [None]
